FAERS Safety Report 20176028 (Version 1)
Quarter: 2021Q4

REPORT INFORMATION
  Report Type: Spontaneous
  Country: US (occurrence: US)
  Receive Date: 20211213
  Receipt Date: 20211213
  Transmission Date: 20220303
  Serious: No
  Sender: FDA-Public Use
  Company Number: US-009507513-2112USA004253

PATIENT

DRUGS (7)
  1. ZEPATIER [Suspect]
     Active Substance: ELBASVIR\GRAZOPREVIR
     Indication: Chronic hepatitis C
     Dosage: UNK
     Route: 048
  2. REBETOL [Concomitant]
     Active Substance: RIBAVIRIN
     Indication: Chronic hepatitis C
  3. SOFOSBUVIR [Concomitant]
     Active Substance: SOFOSBUVIR
     Indication: Chronic hepatitis C
  4. PEGINTRON [Concomitant]
     Active Substance: PEGINTERFERON ALFA-2B
     Indication: Chronic hepatitis C
  5. DACLATASVIR [Concomitant]
     Active Substance: DACLATASVIR
     Indication: Chronic hepatitis C
  6. VELPATASVIR [Concomitant]
     Active Substance: VELPATASVIR
     Indication: Chronic hepatitis C
  7. VOXILAPREVIR [Concomitant]
     Active Substance: VOXILAPREVIR
     Indication: Chronic hepatitis C

REACTIONS (1)
  - Product use in unapproved indication [Unknown]
